FAERS Safety Report 21882556 (Version 1)
Quarter: 2023Q1

REPORT INFORMATION
  Report Type: Report from Study
  Country: US (occurrence: US)
  Receive Date: 20230119
  Receipt Date: 20230119
  Transmission Date: 20230417
  Serious: No
  Sender: FDA-Public Use
  Company Number: US-Accord-273695

PATIENT
  Sex: Male

DRUGS (1)
  1. CLOZAPINE [Suspect]
     Active Substance: CLOZAPINE
     Indication: Tourette^s disorder
     Dosage: 75 MG TWICE A DAY
     Dates: start: 201702

REACTIONS (2)
  - Off label use [Unknown]
  - Therapeutic response unexpected [Unknown]
